FAERS Safety Report 13058426 (Version 1)
Quarter: 2016Q4

REPORT INFORMATION
  Report Type: Spontaneous
  Country: US (occurrence: US)
  Receive Date: 20161208
  Receipt Date: 20161208
  Transmission Date: 20170207
  Serious: No
  Sender: FDA-Public Use
  Company Number: None

PATIENT
  Age: 84 Year
  Sex: Male
  Weight: 77.11 kg

DRUGS (11)
  1. DILANTIN [Concomitant]
     Active Substance: PHENYTOIN
  2. UBIQUINOL [Concomitant]
     Active Substance: UBIQUINOL
  3. SURGE B-COMPLEX [Concomitant]
  4. PREDNISONE. [Concomitant]
     Active Substance: PREDNISONE
  5. PROSTATE COMPLEX PLUS BATA SITOSTERAL [Concomitant]
  6. CALCIUM CITRATE [Concomitant]
     Active Substance: CALCIUM CITRATE
  7. ZINC [Concomitant]
     Active Substance: ZINC\ZINC CHLORIDE
  8. D-3 [Concomitant]
     Active Substance: CHOLECALCIFEROL
  9. PHENYTOIN. [Suspect]
     Active Substance: PHENYTOIN
     Indication: NERVE INJURY
     Dosage: ?          QUANTITY:3 ?G %A% ^?-IST ANY RELEV;?
     Route: 048
     Dates: start: 20161121, end: 20161122
  10. BIOTIN [Concomitant]
     Active Substance: BIOTIN
  11. MAGNESIUM [Concomitant]
     Active Substance: MAGNESIUM

REACTIONS (8)
  - Dysuria [None]
  - Gait disturbance [None]
  - Balance disorder [None]
  - Paraesthesia [None]
  - Headache [None]
  - Hypoaesthesia oral [None]
  - Dizziness [None]
  - Nausea [None]
